FAERS Safety Report 8228884-X (Version None)
Quarter: 2012Q1

REPORT INFORMATION
  Report Type: 
  Country: None (occurrence: None)
  Receive Date: 20120322
  Receipt Date: 20120302
  Transmission Date: 20120608
  Serious: Yes (Other)
  Sender: FDA-Public Use
  Company Number: US-BAYER-2011-090980

PATIENT
  Age: 24 Year
  Sex: Female
  Weight: 54.422 kg

DRUGS (24)
  1. NORTREL 7/7/7 [Concomitant]
     Dosage: UNK
     Dates: start: 20051230
  2. DESOGESTREL AND ETHINYL ESTRADIOL [Concomitant]
     Indication: CONTRACEPTION
     Dosage: UNK
     Dates: start: 20100810, end: 20110603
  3. RANITIDINE [Concomitant]
     Dosage: UNK
     Dates: start: 20060601
  4. CIPROFLOXACIN [Concomitant]
     Dosage: UNK
     Dates: start: 20111101
  5. NORGESTIMATE AND ETHINYL ESTRADIOL [Concomitant]
     Indication: CONTRACEPTION
     Dosage: UNK
     Dates: start: 20040901, end: 20051114
  6. MULTI-VITAMINS [Concomitant]
     Dosage: UNK
     Dates: start: 20091101
  7. PANTOPRAZOLE SODIUM [Concomitant]
     Dosage: 40 MG, UNK
  8. ZOFRAN [Concomitant]
     Indication: NAUSEA
     Dosage: 8 MG: 1 EVERY 8 HOURS AS NEEDED
     Route: 048
  9. OMEPRAZOLE [Concomitant]
     Dosage: UNK
     Dates: start: 20110201
  10. FLUOXETINE HYDROCHLORIDE [Concomitant]
     Dosage: 20 MG,DAILY
     Dates: start: 20051228
  11. TRAZODONE HCL [Concomitant]
     Dosage: 50 MG: 1-2 TABS AT BED TIME
     Dates: start: 20081219
  12. ORTHO-NOVUM 1/35 [Concomitant]
  13. CRINONE [Concomitant]
     Dosage: UNK
     Dates: start: 20091101
  14. ANTIBIOTICS [Concomitant]
     Dosage: UNK
     Dates: start: 20060601
  15. PROMETHAZINE [Concomitant]
     Dosage: UNK
     Dates: start: 20101001
  16. MIRENA [Concomitant]
     Dosage: UNK
     Dates: start: 20110101
  17. YAZ [Suspect]
     Indication: CONTRACEPTION
     Dosage: UNK
     Dates: start: 20070618, end: 20090522
  18. ACETAMINOPHEN AND HYDROCODONE BITARTRATE [Concomitant]
     Indication: PAIN
     Dosage: 5-50MG EVERY 4-6 HOURS
  19. NEXIUM [Concomitant]
     Dosage: UNK
     Dates: start: 20060601
  20. ACETAMINOPHEN [Concomitant]
     Indication: PAIN
  21. ORAL CONTRACEPTIVE NOS [Concomitant]
  22. NORTREL 7/7/7 [Concomitant]
     Indication: CONTRACEPTION
     Dosage: UNK
     Dates: start: 20060306, end: 20070312
  23. MULTI-VITAMIN [Concomitant]
     Dosage: 1 EVERY DAY
     Route: 048
  24. PROZAC [Concomitant]
     Dosage: UNK
     Dates: start: 20091101

REACTIONS (8)
  - PAIN [None]
  - OVARIAN CYST [None]
  - CHOLECYSTITIS CHRONIC [None]
  - INJURY [None]
  - GALLBLADDER INJURY [None]
  - ABDOMINAL PAIN LOWER [None]
  - VOMITING [None]
  - ABDOMINAL PAIN [None]
